FAERS Safety Report 6238920-8 (Version None)
Quarter: 2009Q2

REPORT INFORMATION
  Report Type: 
  Country: None (occurrence: None)
  Receive Date: 20090617
  Receipt Date: 20080116
  Transmission Date: 20091009
  Serious: No
  Sender: FDA-Public Use
  Company Number: 271146

PATIENT
  Age: 68 Year
  Sex: Female

DRUGS (3)
  1. LEVEMIR [Suspect]
     Indication: INSULIN-REQUIRING TYPE 2 DIABETES MELLITUS
     Dosage: 40 IU, QD, SUBCUTANEOUS
     Route: 058
     Dates: start: 20070801
  2. ACTOS /01460201/ (PIOGLITAZONE) [Concomitant]
  3. METFORMIN HCL [Concomitant]

REACTIONS (2)
  - BLISTER [None]
  - SKIN LESION [None]
